FAERS Safety Report 6202649-2 (Version None)
Quarter: 2009Q2

REPORT INFORMATION
  Report Type: 
  Country: None (occurrence: None)
  Receive Date: 20090520
  Receipt Date: 20090515
  Transmission Date: 20091009
  Serious: Yes (Life-Threatening)
  Sender: FDA-Public Use
  Company Number: URSO-2009-060 FUP#1

PATIENT
  Age: 60 Year
  Sex: Male

DRUGS (7)
  1. URSO 250 [Suspect]
     Indication: HEPATITIS C
     Dosage: 600MG ORAL
     Route: 048
     Dates: start: 20070724
  2. LIVACT (ISOLEUCINE-LEUCINE-VALINE) [Concomitant]
  3. CARVEDILOL [Concomitant]
  4. STOGAR (LAFUTIDINE) [Concomitant]
  5. CANDESARTAN CILEXETIL [Concomitant]
  6. ALDACTONE [Concomitant]
  7. LANSOPRAZOLE [Concomitant]

REACTIONS (2)
  - HEPATIC NEOPLASM MALIGNANT [None]
  - OFF LABEL USE [None]
